FAERS Safety Report 8890975 (Version 3)
Quarter: 2013Q2

REPORT INFORMATION
  Report Type: Report from Study
  Country: US (occurrence: US)
  Receive Date: 20121107
  Receipt Date: 20130610
  Transmission Date: 20140414
  Serious: No
  Sender: FDA-Public Use
  Company Number: US-VERTEX PHARMACEUTICAL INC.-2012-019759

PATIENT
  Age: 6 Year
  Sex: Female

DRUGS (9)
  1. VX-770 [Suspect]
     Indication: CYSTIC FIBROSIS
     Dosage: 150 MG, BID
     Route: 048
     Dates: start: 20120725
  2. CREON [Concomitant]
  3. ALBUTEROL [Concomitant]
  4. HYPERTONIC SALINE SOLUTION [Concomitant]
  5. PULMOZYME [Concomitant]
  6. PRILOSEC [Concomitant]
  7. PERIACTIN [Concomitant]
  8. VITAMINS [Concomitant]
  9. PROBIOTICS [Concomitant]

REACTIONS (5)
  - Viral infection [Unknown]
  - Distractibility [Not Recovered/Not Resolved]
  - Feeling abnormal [Not Recovered/Not Resolved]
  - Pyrexia [Recovered/Resolved]
  - Rash [Recovered/Resolved]
